FAERS Safety Report 26117740 (Version 1)
Quarter: 2025Q4

REPORT INFORMATION
  Report Type: Spontaneous
  Country: US (occurrence: None)
  Receive Date: 20251203
  Receipt Date: 20251203
  Transmission Date: 20260118
  Serious: Yes (Other)
  Sender: FDA-CTU
  Company Number: None

PATIENT
  Age: 20 Year
  Sex: Male
  Weight: 67.5 kg

DRUGS (3)
  1. ATOMOXETINE [Suspect]
     Active Substance: ATOMOXETINE
     Indication: Attention deficit hyperactivity disorder
     Dosage: OTHER QUANTITY : 1 TABLET(S);?FREQUENCY : DAILY;?
     Route: 048
  2. ATOMOXETINE [Suspect]
     Active Substance: ATOMOXETINE
     Indication: Anxiety
  3. WELLBUTRIN [Suspect]
     Active Substance: BUPROPION HYDROCHLORIDE

REACTIONS (15)
  - Nonspecific reaction [None]
  - Gastrointestinal disorder [None]
  - Therapy change [None]
  - Mood swings [None]
  - Grief reaction [None]
  - Product dose omission in error [None]
  - Psychotic disorder [None]
  - Confusional state [None]
  - Road traffic accident [None]
  - Memory impairment [None]
  - Patient elopement [None]
  - Poor quality sleep [None]
  - Hallucination, auditory [None]
  - Hallucination, visual [None]
  - Attention deficit hyperactivity disorder [None]

NARRATIVE: CASE EVENT DATE: 20251126
